FAERS Safety Report 20055554 (Version 3)
Quarter: 2022Q1

REPORT INFORMATION
  Report Type: Report from Study
  Country: US (occurrence: US)
  Receive Date: 20211110
  Receipt Date: 20220213
  Transmission Date: 20220423
  Serious: Yes (Hospitalization, Other)
  Sender: FDA-Public Use
  Company Number: US-ABBVIE-21K-163-4150212-00

PATIENT
  Sex: Male

DRUGS (4)
  1. HUMIRA [Suspect]
     Active Substance: ADALIMUMAB
     Indication: Hidradenitis
     Route: 058
  2. HUMIRA [Suspect]
     Active Substance: ADALIMUMAB
     Route: 058
     Dates: start: 20211026, end: 202110
  3. HUMIRA [Suspect]
     Active Substance: ADALIMUMAB
     Route: 058
     Dates: start: 20211027
  4. HUMIRA [Suspect]
     Active Substance: ADALIMUMAB
     Route: 058
     Dates: start: 202201

REACTIONS (16)
  - Wound treatment [Unknown]
  - Skin operation [Unknown]
  - Pain [Recovered/Resolved]
  - Unevaluable event [Recovered/Resolved]
  - Self-consciousness [Unknown]
  - Impaired quality of life [Unknown]
  - Off label use [Unknown]
  - Skin disorder [Recovering/Resolving]
  - Skin disorder [Unknown]
  - Impaired work ability [Unknown]
  - Skin disorder [Unknown]
  - Pruritus [Unknown]
  - Pain of skin [Unknown]
  - Drug ineffective [Unknown]
  - Hidradenitis [Not Recovered/Not Resolved]
  - Unevaluable event [Unknown]

NARRATIVE: CASE EVENT DATE: 20210101
